FAERS Safety Report 21350782 (Version 1)
Quarter: 2022Q3

REPORT INFORMATION
  Report Type: Spontaneous
  Country: US (occurrence: None)
  Receive Date: 20220919
  Receipt Date: 20220919
  Transmission Date: 20221027
  Serious: Yes (Hospitalization)
  Sender: FDA-Public Use
  Company Number: None

PATIENT
  Sex: Male

DRUGS (1)
  1. ONUREG [Suspect]
     Active Substance: AZACITIDINE
     Indication: Acute myeloid leukaemia
     Dosage: OTHER FREQUENCY : DAILY FOR 14 DAYS;?
     Route: 048
     Dates: start: 20220731, end: 20220916

REACTIONS (2)
  - Vomiting [None]
  - Gastrointestinal tract irritation [None]
